FAERS Safety Report 17949812 (Version 1)
Quarter: 2020Q2

REPORT INFORMATION
  Report Type: Spontaneous
  Country: US (occurrence: US)
  Receive Date: 20200626
  Receipt Date: 20200626
  Transmission Date: 20200714
  Serious: No
  Sender: FDA-Public Use
  Company Number: None

PATIENT
  Age: 64 Year
  Sex: Female
  Weight: 80.37 kg

DRUGS (9)
  1. ANASTROZOLE 1MG [Concomitant]
     Active Substance: ANASTROZOLE
  2. ELIQUIS [Concomitant]
     Active Substance: APIXABAN
  3. PANTOPRAZOLE 40MG [Concomitant]
     Active Substance: PANTOPRAZOLE SODIUM
  4. IBRANCE [Suspect]
     Active Substance: PALBOCICLIB
     Indication: BREAST CANCER
     Route: 048
     Dates: start: 20200408
  5. PROMETHAZINE 25MG [Concomitant]
  6. DYAZIDE 37.5-25MG [Concomitant]
  7. LEXAPRO [Concomitant]
     Active Substance: ESCITALOPRAM OXALATE
  8. ALBUTEROL SULFATE 2.5MG/0.5ML [Concomitant]
  9. BENICAR [Concomitant]
     Active Substance: OLMESARTAN MEDOXOMIL

REACTIONS (2)
  - Alopecia [None]
  - Diarrhoea [None]

NARRATIVE: CASE EVENT DATE: 20200626
